FAERS Safety Report 10352222 (Version 1)
Quarter: 2014Q3

REPORT INFORMATION
  Report Type: Spontaneous
  Country: US (occurrence: US)
  Receive Date: 20140730
  Receipt Date: 20140730
  Transmission Date: 20150326
  Serious: No
  Sender: FDA-Public Use
  Company Number: US-ABBVIE-13P-163-1125618-00

PATIENT
  Age: 45 Year
  Sex: Female

DRUGS (1)
  1. SYNTHROID [Suspect]
     Active Substance: LEVOTHYROXINE SODIUM
     Indication: PRODUCT USED FOR UNKNOWN INDICATION

REACTIONS (12)
  - Unevaluable event [Unknown]
  - Fatigue [Unknown]
  - Headache [Unknown]
  - Pain [Unknown]
  - Weight increased [Unknown]
  - Dry skin [Unknown]
  - Restlessness [Unknown]
  - Hypohidrosis [Unknown]
  - Eye swelling [Unknown]
  - Poor quality sleep [Unknown]
  - Temperature intolerance [Unknown]
  - Libido decreased [Unknown]
